FAERS Safety Report 7556506-X (Version None)
Quarter: 2011Q2

REPORT INFORMATION
  Report Type: 
  Country: None (occurrence: None)
  Receive Date: 20110615
  Receipt Date: 20110615
  Transmission Date: 20111010
  Serious: Yes (Other)
  Sender: FDA-Public Use
  Company Number: None

PATIENT
  Age: 55 Year
  Sex: Male
  Weight: 75.7507 kg

DRUGS (2)
  1. SIMVASTATIN [Suspect]
     Indication: BLOOD CHOLESTEROL INCREASED
     Dosage: 1 DAILY PO
     Route: 048
     Dates: start: 20091005, end: 20100314
  2. COLESTIPOL HYDROCHLORIDE [Suspect]
     Indication: BLOOD CHOLESTEROL INCREASED
     Dosage: 4 DAILY PO
     Route: 048
     Dates: start: 20091005

REACTIONS (2)
  - TENDON PAIN [None]
  - MYALGIA [None]
